FAERS Safety Report 9725982 (Version 2)
Quarter: 2014Q1

REPORT INFORMATION
  Report Type: Spontaneous
  Country: US (occurrence: US)
  Receive Date: 20131203
  Receipt Date: 20140108
  Transmission Date: 20141002
  Serious: Yes (Hospitalization)
  Sender: FDA-Public Use
  Company Number: US-BAYER-2013-143127

PATIENT
  Age: 33 Year
  Sex: Female
  Weight: 58.96 kg

DRUGS (5)
  1. MIRENA [Suspect]
     Indication: CONTRACEPTION
     Dosage: 20 MCG/24HR, CONT
     Route: 015
     Dates: start: 20090316, end: 20101118
  2. ALBUTEROL [Concomitant]
     Indication: ASTHMA
     Dosage: UNK
     Dates: start: 1993
  3. IRON SULFATE [Concomitant]
     Dosage: UNK
     Dates: start: 2002
  4. HYDROCODONE [Concomitant]
     Indication: MIGRAINE
     Dosage: UNK
     Dates: start: 2007
  5. VICODIN [Concomitant]
     Indication: BACK PAIN
     Dosage: UNK

REACTIONS (5)
  - Uterine perforation [None]
  - Device issue [None]
  - Abdominal pain [None]
  - Injury [None]
  - Emotional distress [None]
